FAERS Safety Report 12119412 (Version 1)
Quarter: 2016Q1

REPORT INFORMATION
  Report Type: Spontaneous
  Country: US (occurrence: None)
  Receive Date: 20160225
  Receipt Date: 20160225
  Transmission Date: 20160526
  Serious: No
  Sender: FDA-Public Use
  Company Number: None

PATIENT

DRUGS (1)
  1. EPINEPHRINE INJECTION, USP AUTO INJECTOR [Suspect]
     Active Substance: EPINEPHRINE

REACTIONS (3)
  - Drug dose omission [None]
  - Injury associated with device [None]
  - Device malfunction [None]

NARRATIVE: CASE EVENT DATE: 20160201
